FAERS Safety Report 6339520-1 (Version None)
Quarter: 2009Q3

REPORT INFORMATION
  Report Type: 
  Country: None (occurrence: None)
  Receive Date: 20090903
  Receipt Date: 20090831
  Transmission Date: 20100115
  Serious: Yes (Life-Threatening)
  Sender: FDA-Public Use
  Company Number: JP-BAYER-200912548BYL

PATIENT
  Age: 70 Year
  Sex: Male
  Weight: 55 kg

DRUGS (11)
  1. NEXAVAR [Suspect]
     Indication: RENAL CELL CARCINOMA STAGE IV
     Dosage: UNIT DOSE: 200 MG
     Route: 048
     Dates: start: 20090708, end: 20090716
  2. SUPACAL [Concomitant]
     Dosage: UNIT DOSE: 40 MG
     Route: 048
     Dates: start: 20090302
  3. NORVASC [Concomitant]
     Dosage: UNIT DOSE: 5 MG
     Route: 048
     Dates: start: 20090302
  4. BLOPRESS [Concomitant]
     Dosage: UNIT DOSE: 8 MG
     Route: 048
     Dates: start: 20090302
  5. TAKEPRON [Concomitant]
     Dosage: UNIT DOSE: 30 MG
     Route: 048
     Dates: start: 20090302
  6. GASMOTIN [Concomitant]
     Dosage: UNIT DOSE: 5 MG
     Route: 048
     Dates: start: 20090302
  7. MAGNESIUM OXIDE [Concomitant]
     Route: 048
     Dates: start: 20090302
  8. PURSENNID [Concomitant]
     Route: 048
     Dates: start: 20090302
  9. THYRADIN S [Concomitant]
     Dosage: UNIT DOSE: 50 ?G
     Route: 048
     Dates: start: 20090516
  10. CALONAL [Concomitant]
     Dosage: UNIT DOSE: 200 MG
     Route: 048
     Dates: start: 20090608
  11. NAUZELIN [Concomitant]
     Dosage: TOTAL DAILY DOSE: 30 MG
     Route: 048
     Dates: start: 20090613

REACTIONS (3)
  - HYPERTENSION [None]
  - PALMAR-PLANTAR ERYTHRODYSAESTHESIA SYNDROME [None]
  - RENAL FAILURE [None]
